FAERS Safety Report 7276439-6 (Version None)
Quarter: 2011Q1

REPORT INFORMATION
  Report Type: 
  Country: None (occurrence: None)
  Receive Date: 20110204
  Receipt Date: 20110201
  Transmission Date: 20110831
  Serious: Yes (Other)
  Sender: FDA-Public Use
  Company Number: US-PFIZER INC-2010001470

PATIENT
  Sex: Male

DRUGS (1)
  1. GABAPENTIN [Suspect]
     Indication: PANIC ATTACK
     Dosage: 9600 MG, 1X/DAY (12 TABLETS OF 800 MG )

REACTIONS (1)
  - DRUG DEPENDENCE [None]
